FAERS Safety Report 23810248 (Version 1)
Quarter: 2024Q2

REPORT INFORMATION
  Report Type: Spontaneous
  Country: US (occurrence: None)
  Receive Date: 20240502
  Receipt Date: 20240502
  Transmission Date: 20240716
  Serious: No
  Sender: FDA-Public Use
  Company Number: 2024A033068

PATIENT
  Age: 1 Year
  Sex: Male

DRUGS (2)
  1. BEYFORTUS [Suspect]
     Active Substance: NIRSEVIMAB-ALIP
     Dosage: DOSE NUMBER IN SERIES 1
     Route: 030
     Dates: start: 20231010
  2. FLUZONE HIGH-DOSE QUADRIVALENT [Suspect]
     Active Substance: INFLUENZA A VIRUS A/MICHIGAN/45/2015 X-275 (H1N1) ANTIGEN (FORMALDEHYDE INACTIVATED)\INFLUENZA A VIR
     Dosage: DOSE NUMBER IN SERIES 1
     Route: 030
     Dates: start: 20231010

REACTIONS (4)
  - Rash pruritic [Recovered/Resolved]
  - Macule [Recovered/Resolved]
  - Urticaria [Recovered/Resolved]
  - Rash [Recovered/Resolved]

NARRATIVE: CASE EVENT DATE: 20231014
